FAERS Safety Report 8199210-X (Version None)
Quarter: 2012Q1

REPORT INFORMATION
  Report Type: 
  Country: None (occurrence: None)
  Receive Date: 20120309
  Receipt Date: 20120307
  Transmission Date: 20120608
  Serious: No
  Sender: FDA-Public Use
  Company Number: US-BAYER-2012-022454

PATIENT
  Sex: Male

DRUGS (1)
  1. CIPRO [Suspect]

REACTIONS (1)
  - INSOMNIA [None]
